FAERS Safety Report 20409209 (Version 7)
Quarter: 2022Q4

REPORT INFORMATION
  Report Type: Spontaneous
  Country: GB (occurrence: GB)
  Receive Date: 20220201
  Receipt Date: 20221026
  Transmission Date: 20230113
  Serious: Yes (Death, Life-Threatening, Hospitalization, Disabling, Other)
  Sender: FDA-Public Use
  Company Number: GB-GALDERMA-GB2021020186

PATIENT
  Age: 76 Year
  Sex: Male
  Weight: 69 kg

DRUGS (68)
  1. DEXTROSE [Suspect]
     Active Substance: DEXTROSE
     Indication: Product used for unknown indication
     Dosage: UNK
     Route: 065
     Dates: start: 20180130
  2. DEXTROSE [Suspect]
     Active Substance: DEXTROSE
     Dosage: UNK
     Route: 065
  3. TACROLIMUS [Suspect]
     Active Substance: TACROLIMUS
     Indication: Renal transplant
     Dosage: 1.5 MG, BID
     Route: 065
     Dates: start: 20180127
  4. TACROLIMUS [Suspect]
     Active Substance: TACROLIMUS
     Indication: Prophylaxis against transplant rejection
     Dosage: 1.5 MG, QD
     Route: 048
     Dates: start: 20180127
  5. TACROLIMUS [Suspect]
     Active Substance: TACROLIMUS
     Dosage: 2 MILLIGRAM, BID
     Route: 048
     Dates: start: 20180128, end: 20180130
  6. TACROLIMUS [Suspect]
     Active Substance: TACROLIMUS
     Dosage: 3 MG (1.5 MG BID)
     Route: 065
     Dates: start: 20100127, end: 20180130
  7. TACROLIMUS [Suspect]
     Active Substance: TACROLIMUS
     Dosage: 3 MG QD (1.5 MG BID)
     Route: 048
     Dates: start: 20100127, end: 20180130
  8. TACROLIMUS [Suspect]
     Active Substance: TACROLIMUS
     Dosage: 30 MG QD (15 MG, BID)
     Route: 048
     Dates: start: 20180127
  9. TACROLIMUS [Suspect]
     Active Substance: TACROLIMUS
     Dosage: 2 MG, BID (TACROLIMUS 2 MG TWICE DAILY)
     Route: 048
     Dates: start: 20180128
  10. TACROLIMUS [Suspect]
     Active Substance: TACROLIMUS
     Dosage: 3 MG DAILY
     Route: 048
     Dates: start: 20180127
  11. TACROLIMUS [Suspect]
     Active Substance: TACROLIMUS
     Dosage: 4 MILIGRAM QD
     Route: 048
     Dates: start: 20180128, end: 20180130
  12. TACROLIMUS [Suspect]
     Active Substance: TACROLIMUS
     Dosage: 15 MG, UNK ON NIGHT
     Route: 065
  13. TACROLIMUS [Suspect]
     Active Substance: TACROLIMUS
     Dosage: 27 MG FIVE TIMES DAILY
     Route: 065
  14. TACROLIMUS [Suspect]
     Active Substance: TACROLIMUS
     Dosage: 12 MG
     Route: 065
  15. TACROLIMUS [Suspect]
     Active Substance: TACROLIMUS
     Dosage: 3 MILLIGRAM DAILY
     Route: 065
     Dates: start: 20100128
  16. TACROLIMUS [Suspect]
     Active Substance: TACROLIMUS
     Dosage: 3 MILLIGRAM
     Route: 065
  17. ALFACALCIDOL [Suspect]
     Active Substance: ALFACALCIDOL
     Indication: Product used for unknown indication
     Dosage: 500 NANOGRAM, QD
     Route: 048
  18. ALFACALCIDOL [Suspect]
     Active Substance: ALFACALCIDOL
     Dosage: 500 NG, QD O/A
     Route: 065
  19. BISOPROLOL [Suspect]
     Active Substance: BISOPROLOL
     Indication: Product used for unknown indication
     Dosage: UNK
     Route: 065
  20. CLARITHROMYCIN [Suspect]
     Active Substance: CLARITHROMYCIN
     Indication: Lower respiratory tract infection
     Dosage: 500 MILLIGRAM, QD
     Route: 042
     Dates: start: 20180127, end: 20180131
  21. CLARITHROMYCIN [Suspect]
     Active Substance: CLARITHROMYCIN
     Indication: Mediastinitis
     Dosage: 500 MILLIGRAM, BID
     Route: 042
     Dates: start: 20180127, end: 20180130
  22. CLARITHROMYCIN [Suspect]
     Active Substance: CLARITHROMYCIN
     Indication: Pneumonia
     Dosage: 9000 MILLIGRAM, QD
     Route: 065
  23. CLARITHROMYCIN [Suspect]
     Active Substance: CLARITHROMYCIN
     Dosage: 250 MILLIGRAM DAILY; 500 MILLIGRAM, QOD
     Route: 042
     Dates: start: 20180127, end: 20180131
  24. CLARITHROMYCIN [Suspect]
     Active Substance: CLARITHROMYCIN
     Dosage: 1000 MG DAILY
     Route: 065
  25. CEFUROXIME [Suspect]
     Active Substance: CEFUROXIME
     Indication: Product used for unknown indication
     Dosage: UNK
     Route: 065
     Dates: start: 20180131
  26. DOXYCYCLINE [Suspect]
     Active Substance: DOXYCYCLINE
     Indication: Product used for unknown indication
     Dosage: UNK
     Route: 065
  27. DOXYCYCLINE [Suspect]
     Active Substance: DOXYCYCLINE
     Dosage: UNK
     Route: 065
  28. HYDROCORTISONE [Suspect]
     Active Substance: HYDROCORTISONE
     Indication: Product used for unknown indication
     Dosage: 150 MG, QD (50 MILLIGRAM, TID)
     Route: 042
  29. HYDROCORTISONE [Suspect]
     Active Substance: HYDROCORTISONE
     Dosage: 150 MG, TID
     Route: 065
     Dates: start: 20180201
  30. HYDROCORTISONE [Suspect]
     Active Substance: HYDROCORTISONE
     Dosage: 150 MG, QD (50 MILLIGRAM, TID)
     Route: 065
  31. HYDROCORTISONE [Suspect]
     Active Substance: HYDROCORTISONE
     Dosage: 150 MG, QD (50 MILLIGRAM, TID)
     Route: 065
     Dates: start: 20180201
  32. SENNOSIDES A AND B [Suspect]
     Active Substance: SENNOSIDES A AND B
     Indication: Product used for unknown indication
     Dosage: UNK
     Route: 065
  33. ENVARSUS XR [Suspect]
     Active Substance: TACROLIMUS
     Indication: Prophylaxis against transplant rejection
     Dosage: 1.5 MG, BID
     Route: 048
     Dates: start: 20180127, end: 20180131
  34. ENVARSUS XR [Suspect]
     Active Substance: TACROLIMUS
     Dosage: 27 MG
     Route: 065
  35. ENVARSUS XR [Suspect]
     Active Substance: TACROLIMUS
     Dosage: 27 MG
     Route: 065
  36. EPLERENONE [Suspect]
     Active Substance: EPLERENONE
     Dosage: 25 MG MONTHLY
     Route: 048
     Dates: start: 20180130
  37. EPLERENONE [Suspect]
     Active Substance: EPLERENONE
     Dosage: 25 MILLIGRAM DAILY; EPLERENONE 25MG OM PO O/A
     Route: 048
     Dates: start: 20180130
  38. NITROGLYCERIN [Suspect]
     Active Substance: NITROGLYCERIN
     Route: 065
  39. NITROGLYCERIN [Suspect]
     Active Substance: NITROGLYCERIN
     Dosage: UNK
     Route: 065
  40. GLUCAGON [Suspect]
     Active Substance: GLUCAGON
     Indication: Product used for unknown indication
     Dosage: UNK
     Route: 030
     Dates: start: 20180130
  41. PREDNISOLONE [Suspect]
     Active Substance: PREDNISOLONE
     Indication: Product used for unknown indication
     Dosage: 5 MG, QMO (INCREASE PREDNISOLONE TO 10 MG FOR 5 DAYS
     Route: 048
     Dates: start: 20180127
  42. PREDNISOLONE [Suspect]
     Active Substance: PREDNISOLONE
     Dosage: 10 MG (INCREASE PREDNISOLONE TO 10 MG FOR 5 DAYS)
     Route: 065
     Dates: start: 20180127
  43. PREDNISOLONE [Suspect]
     Active Substance: PREDNISOLONE
     Dosage: 5 MG DAILY
     Route: 048
  44. PREDNISOLONE [Suspect]
     Active Substance: PREDNISOLONE
     Dosage: 10 MG ONCE MONTHLY (0.333 MG DAILY)
     Route: 065
  45. PREDNISOLONE [Suspect]
     Active Substance: PREDNISOLONE
     Dosage: ONCE MONTHLY
     Route: 048
  46. OMEPRAZOLE [Suspect]
     Active Substance: OMEPRAZOLE
     Indication: Duodenal ulcer
     Dosage: 20 MG, QD, OMEPRAZOLE CHEMO IBERICA
     Route: 065
  47. OMEPRAZOLE [Suspect]
     Active Substance: OMEPRAZOLE
     Indication: Product used for unknown indication
     Dosage: 20 MG, QMO
     Route: 065
  48. OMEPRAZOLE [Suspect]
     Active Substance: OMEPRAZOLE
     Dosage: 20 MG DAILY
     Route: 065
  49. ALLOPURINOL [Concomitant]
     Active Substance: ALLOPURINOL
     Indication: Product used for unknown indication
     Dosage: 100 MILLIGRAM DAILY
     Route: 048
  50. BETAHISTINE [Concomitant]
     Active Substance: BETAHISTINE
     Indication: Product used for unknown indication
     Dosage: 8 MILLIGRAM, QD, EVERY MORNING
     Route: 065
  51. BETAHISTINE [Concomitant]
     Active Substance: BETAHISTINE
     Dosage: 8 MG, MONTHLY
     Route: 065
  52. BETAHISTINE [Concomitant]
     Active Substance: BETAHISTINE
     Dosage: MORNING
     Route: 065
  53. CHOLECALCIFEROL [Concomitant]
     Active Substance: CHOLECALCIFEROL
     Indication: Product used for unknown indication
     Dosage: 20 NANOGRAM, MORNING, QD (MONTHLY)
     Route: 048
  54. CHOLECALCIFEROL [Concomitant]
     Active Substance: CHOLECALCIFEROL
     Dosage: MORNING
     Route: 065
  55. CHOLECALCIFEROL [Concomitant]
     Active Substance: CHOLECALCIFEROL
     Dosage: 20 NG, MONTHLY
     Route: 065
  56. CHOLECALCIFEROL [Concomitant]
     Active Substance: CHOLECALCIFEROL
     Dosage: 20 NANOGRAM DAILY; CALCIUM CARBONATE AND COLECALCIFEROL 20NG DAILY
     Route: 048
  57. GLUCOGEL [Concomitant]
     Indication: Product used for unknown indication
     Dosage: UNK
     Route: 065
     Dates: start: 20180130
  58. GLICLAZIDE [Concomitant]
     Active Substance: GLICLAZIDE
     Indication: Product used for unknown indication
     Dosage: 40 MILLIGRAM QD MONTHY
     Route: 048
  59. GLICLAZIDE [Concomitant]
     Active Substance: GLICLAZIDE
     Dosage: MORNING
     Route: 048
  60. GLICLAZIDE [Concomitant]
     Active Substance: GLICLAZIDE
     Dosage: 40 MG, MONTHLY
     Route: 048
  61. ALBUTEROL [Concomitant]
     Active Substance: ALBUTEROL
     Indication: Product used for unknown indication
     Dosage: UNK
     Route: 065
  62. SENNA [Concomitant]
     Active Substance: SENNA LEAF\SENNOSIDES\SENNOSIDES A AND B
     Indication: Product used for unknown indication
     Dosage: 15 MILLIGRAM, QD EVERY NIGHT O/A
     Route: 048
  63. FUROSEMIDE [Concomitant]
     Active Substance: FUROSEMIDE
     Indication: Product used for unknown indication
     Dosage: 40 MG, UNK 12 PM
     Route: 048
  64. FUROSEMIDE [Concomitant]
     Active Substance: FUROSEMIDE
     Indication: Product used for unknown indication
     Dosage: 80MG MORNING, 40MG 12PM
     Route: 048
     Dates: start: 20180130
  65. FUROSEMIDE [Concomitant]
     Active Substance: FUROSEMIDE
     Dosage: 80MG MORNING, 40MG 12PM
     Route: 048
     Dates: end: 20180130
  66. FUROSEMIDE [Concomitant]
     Active Substance: FUROSEMIDE
     Dosage: 80 MG, MONTHLY
     Route: 048
     Dates: start: 20180130
  67. FUROSEMIDE [Concomitant]
     Active Substance: FUROSEMIDE
     Dosage: 40 MG, UNK 12 PM
     Route: 048
  68. CALCIUM CARBONATE [Concomitant]
     Active Substance: CALCIUM CARBONATE
     Indication: Product used for unknown indication
     Dosage: UNK
     Route: 048

REACTIONS (34)
  - Immunosuppressant drug level increased [Fatal]
  - Myocardial ischaemia [Fatal]
  - Dyspnoea [Fatal]
  - Multimorbidity [Fatal]
  - Swelling [Fatal]
  - Oesophageal perforation [Fatal]
  - Pneumonia [Fatal]
  - Acute kidney injury [Fatal]
  - Oesophageal carcinoma [Fatal]
  - Sepsis [Fatal]
  - Cardiac failure congestive [Fatal]
  - Drug interaction [Fatal]
  - Drug level increased [Fatal]
  - Lower respiratory tract infection [Fatal]
  - Malaise [Fatal]
  - Ascites [Fatal]
  - Renal impairment [Fatal]
  - Pleural effusion [Fatal]
  - Cardiomegaly [Fatal]
  - Transplant failure [Fatal]
  - Toxicity to various agents [Fatal]
  - Cough [Fatal]
  - Hypoglycaemia [Fatal]
  - Dysphagia [Fatal]
  - Superinfection [Fatal]
  - Rales [Fatal]
  - Soft tissue mass [Fatal]
  - Inflammatory marker increased [Fatal]
  - Lung consolidation [Fatal]
  - Productive cough [Fatal]
  - Labelled drug-drug interaction medication error [Fatal]
  - Rash [Fatal]
  - Pyrexia [Fatal]
  - Haemoptysis [Fatal]

NARRATIVE: CASE EVENT DATE: 20180118
